FAERS Safety Report 24378541 (Version 1)
Quarter: 2024Q3

REPORT INFORMATION
  Report Type: Spontaneous
  Country: US (occurrence: US)
  Receive Date: 20240930
  Receipt Date: 20240930
  Transmission Date: 20241016
  Serious: No
  Sender: LEO PHARM
  Company Number: US-LEO Pharma-362818

PATIENT
  Sex: Female

DRUGS (2)
  1. ADBRY [Suspect]
     Active Substance: TRALOKINUMAB-LDRM
     Indication: Product used for unknown indication
     Dosage: 600 MG SUBCUTANEOUSLY ON DAY 1 THEN AT 300 MG SUBCUTANEOUSLY EVERY 14 DAYS THEREAFTER
     Route: 058
     Dates: start: 202307
  2. ADBRY [Suspect]
     Active Substance: TRALOKINUMAB-LDRM
     Indication: Product used for unknown indication
     Dosage: 300 MG SUBCUTANEOUSLY EVERY 14 DAYS THEREAFTER
     Route: 058

REACTIONS (1)
  - Drug ineffective [Unknown]
